FAERS Safety Report 8143768-3 (Version None)
Quarter: 2012Q1

REPORT INFORMATION
  Report Type: 
  Country: None (occurrence: None)
  Receive Date: 20120217
  Receipt Date: 20120206
  Transmission Date: 20120608
  Serious: Yes (Death)
  Sender: FDA-Public Use
  Company Number: US-MYLANLABS-2012S1002839

PATIENT
  Age: 31 Year
  Sex: Male
  Weight: 122.47 kg

DRUGS (3)
  1. FENTANYL [Suspect]
  2. HYDROCODONE BITARTRATE [Suspect]
  3. ALPRAZOLAM [Suspect]

REACTIONS (1)
  - TOXICITY TO VARIOUS AGENTS [None]
